FAERS Safety Report 11080899 (Version 2)
Quarter: 2015Q2

REPORT INFORMATION
  Report Type: Spontaneous
  Country: CN (occurrence: CN)
  Receive Date: 20150501
  Receipt Date: 20150511
  Transmission Date: 20150821
  Serious: No
  Sender: FDA-Public Use
  Company Number: CN-009507513-1504CHN022079

PATIENT
  Sex: Female

DRUGS (2)
  1. MARVELON [Suspect]
     Active Substance: DESOGESTREL\ETHINYL ESTRADIOL
     Indication: MENSTRUATION IRREGULAR
     Dosage: UNK
     Route: 048
  2. MARVELON [Suspect]
     Active Substance: DESOGESTREL\ETHINYL ESTRADIOL
     Indication: ENDOCRINE DISORDER

REACTIONS (6)
  - Weight increased [Unknown]
  - Inappropriate schedule of drug administration [Unknown]
  - Menstruation irregular [Unknown]
  - Menstrual disorder [Unknown]
  - Drug administration error [Unknown]
  - Uterine polyp [Unknown]

NARRATIVE: CASE EVENT DATE: 2003
